FAERS Safety Report 5526853-1 (Version None)
Quarter: 2007Q4

REPORT INFORMATION
  Report Type: 
  Country: None (occurrence: None)
  Receive Date: 20071127
  Receipt Date: 20071122
  Transmission Date: 20080405
  Serious: Yes (Other)
  Sender: FDA-Public Use
  Company Number: CA-ASTRAZENECA-2007UW03526

PATIENT
  Age: 47 Year
  Sex: Female

DRUGS (7)
  1. ENTOCORT EC [Suspect]
     Indication: CROHN'S DISEASE
     Route: 048
     Dates: start: 20020101
  2. CLONIDINE [Concomitant]
     Indication: HOT FLUSH
     Route: 048
     Dates: start: 20051222
  3. CELEBREX [Concomitant]
     Route: 048
     Dates: start: 20061101
  4. TERAZOL DUAL [Concomitant]
     Indication: FUNGAL INFECTION
  5. APO-FLUCONAZOLE [Concomitant]
     Indication: FUNGAL INFECTION
  6. ISOFLAGYSTATIN [Concomitant]
     Indication: FUNGAL INFECTION
  7. CELEXA [Concomitant]

REACTIONS (3)
  - BLOOD GLUCOSE INCREASED [None]
  - CONDITION AGGRAVATED [None]
  - FUNGAL INFECTION [None]
